FAERS Safety Report 19685386 (Version 1)
Quarter: 2021Q3

REPORT INFORMATION
  Report Type: Spontaneous
  Country: US (occurrence: US)
  Receive Date: 20210811
  Receipt Date: 20210811
  Transmission Date: 20211014
  Serious: No
  Sender: FDA-Public Use
  Company Number: US-LEO PHARMA-337454

PATIENT
  Sex: Female

DRUGS (1)
  1. FINACEA [Suspect]
     Active Substance: AZELAIC ACID
     Indication: ROSACEA
     Dosage: DOSAGE : USED FINACEA GEL FOR OVER A YEAR WITH GREAT SUCCESS
     Route: 065

REACTIONS (1)
  - Drug hypersensitivity [Unknown]
